FAERS Safety Report 5345606-0 (Version None)
Quarter: 2007Q2

REPORT INFORMATION
  Report Type: 
  Country: None (occurrence: None)
  Receive Date: 20070605
  Receipt Date: 20061201
  Transmission Date: 20071010
  Serious: No
  Sender: FDA-Public Use
  Company Number: US-ASTRAZENECA-2006UW27419

PATIENT
  Age: 6 Month
  Sex: Male

DRUGS (2)
  1. PRILOSEC [Suspect]
     Route: 048
     Dates: start: 20061001
  2. PREVACID [Concomitant]

REACTIONS (1)
  - CHOKING [None]
